FAERS Safety Report 4525958-1 (Version None)
Quarter: 2004Q4

REPORT INFORMATION
  Report Type: 
  Country: None (occurrence: None)
  Receive Date: 20041213
  Receipt Date: 20041213
  Transmission Date: 20050328
  Serious: Yes (Life-Threatening, Other)
  Sender: FDA-Public Use
  Company Number: None

PATIENT
  Age: 50 Year
  Sex: Female
  Weight: 65.7716 kg

DRUGS (1)
  1. AMBIEN [Suspect]
     Dosage: 1 TABLET  AS NEEDED ORAL
     Route: 048
     Dates: start: 20041105, end: 20041113

REACTIONS (8)
  - ABNORMAL BEHAVIOUR [None]
  - ANGER [None]
  - ANXIETY [None]
  - CRYING [None]
  - DEPRESSION [None]
  - MOOD ALTERED [None]
  - SCREAMING [None]
  - SUICIDAL IDEATION [None]
